FAERS Safety Report 25720817 (Version 1)
Quarter: 2025Q3

REPORT INFORMATION
  Report Type: Spontaneous
  Country: US (occurrence: US)
  Receive Date: 20250825
  Receipt Date: 20250825
  Transmission Date: 20251021
  Serious: Yes (Death)
  Sender: ROCHE
  Company Number: US-ROCHE-10000369407

PATIENT
  Age: 87 Year
  Sex: Male

DRUGS (2)
  1. XOLAIR [Suspect]
     Active Substance: OMALIZUMAB
     Indication: Asthma
     Dosage: STRENGTH: 75MG/0.5 ML
     Route: 058
     Dates: start: 202501
  2. XOLAIR [Suspect]
     Active Substance: OMALIZUMAB
     Dosage: STRENGTH: 300MG/2ML
     Route: 058
     Dates: start: 202501

REACTIONS (1)
  - Death [Fatal]

NARRATIVE: CASE EVENT DATE: 20250815
